FAERS Safety Report 8572219-X (Version None)
Quarter: 2012Q2

REPORT INFORMATION
  Report Type: 
  Country: None (occurrence: None)
  Receive Date: 20120418
  Receipt Date: 20090701
  Transmission Date: 20120825
  Serious: Yes (Hospitalization)
  Sender: FDA-Public Use
  Company Number: PHEH2009US07013

PATIENT
  Age: 47 Year
  Sex: Male
  Weight: 83 kg

DRUGS (4)
  1. DIOVAN HCT [Suspect]
     Indication: HYPERTENSION
     Dosage: 160/25 MG DAILY, ORAL
     Route: 048
     Dates: start: 20070907, end: 20090312
  2. COLCHICINE [Concomitant]
  3. MOBIC [Concomitant]
  4. LORTAB [Concomitant]

REACTIONS (1)
  - RENAL FAILURE [None]
